FAERS Safety Report 21016456 (Version 1)
Quarter: 2022Q2

REPORT INFORMATION
  Report Type: Spontaneous
  Country: US (occurrence: None)
  Receive Date: 20220627
  Receipt Date: 20220627
  Transmission Date: 20220721
  Serious: Yes (Hospitalization)
  Sender: FDA-Public Use
  Company Number: None

PATIENT
  Age: 74 Year
  Sex: Male

DRUGS (2)
  1. ALLOPURINOL [Suspect]
     Active Substance: ALLOPURINOL
     Indication: Gout
     Dosage: OTHER FREQUENCY : AM;?
     Route: 048
     Dates: start: 20220511, end: 20220610
  2. AZATHIOPRINE [Suspect]
     Active Substance: AZATHIOPRINE
     Indication: Liver transplant
     Dosage: FREQUENCY : DAILY;?
     Route: 048
     Dates: start: 20190122

REACTIONS (5)
  - Thrombocytopenia [None]
  - Leukopenia [None]
  - Anaemia [None]
  - Fatigue [None]
  - Acute kidney injury [None]

NARRATIVE: CASE EVENT DATE: 20220610
